FAERS Safety Report 5370830-0 (Version None)
Quarter: 2007Q2

REPORT INFORMATION
  Report Type: 
  Country: None (occurrence: None)
  Receive Date: 20070618
  Receipt Date: 20070319
  Transmission Date: 20071010
  Serious: Yes (Other)
  Sender: FDA-Public Use
  Company Number: PHEH2006US15266

PATIENT
  Age: 62 Year
  Sex: Male

DRUGS (6)
  1. GLEEVEC [Suspect]
     Indication: CHRONIC MYELOID LEUKAEMIA
     Dosage: 400 MG, QD, ORAL
     Route: 048
     Dates: start: 20061103
  2. ALLOPURINOL [Suspect]
     Indication: PROPHYLAXIS
     Dosage: ORAL
     Route: 048
     Dates: start: 20061103, end: 20061101
  3. ACYCLOVIR [Concomitant]
  4. HYZAAR [Concomitant]
  5. CRESTOR [Concomitant]
  6. FOLIC ACID [Concomitant]

REACTIONS (4)
  - DRUG ERUPTION [None]
  - DYSPHAGIA [None]
  - MOUTH ULCERATION [None]
  - PHARYNGOLARYNGEAL PAIN [None]
